FAERS Safety Report 5726283-3 (Version None)
Quarter: 2008Q2

REPORT INFORMATION
  Report Type: 
  Country: None (occurrence: None)
  Receive Date: 20080501
  Receipt Date: 20080501
  Transmission Date: 20081010
  Serious: Yes (Hospitalization)
  Sender: FDA-Public Use
  Company Number: None

PATIENT
  Sex: Male
  Weight: 83.9154 kg

DRUGS (9)
  1. TAXOTERE [Suspect]
     Indication: PROSTATE CANCER
     Dosage: 154MGIVBP
     Route: 040
  2. BEVACIZUMAB 15MG/KG [Suspect]
     Indication: PROSTATE CANCER
     Dosage: 1305 MGIVBP
     Route: 040
  3. RAD001 5MG [Suspect]
     Dosage: 5MG PO
     Route: 048
  4. ZOLEDRONIC ACID [Concomitant]
  5. ENALAPRIL MALEATE [Concomitant]
  6. ZOCOR [Concomitant]
  7. ASPIRIN [Concomitant]
  8. LUPRON [Concomitant]
  9. ZOMETA [Concomitant]

REACTIONS (8)
  - ANAEMIA [None]
  - BLOOD POTASSIUM DECREASED [None]
  - CARBON DIOXIDE DECREASED [None]
  - DIZZINESS [None]
  - NAUSEA [None]
  - PYREXIA [None]
  - RESPIRATORY ALKALOSIS [None]
  - SYNCOPE VASOVAGAL [None]
